FAERS Safety Report 15566291 (Version 1)
Quarter: 2018Q4

REPORT INFORMATION
  Report Type: Spontaneous
  Country: IS (occurrence: IS)
  Receive Date: 20181030
  Receipt Date: 20181030
  Transmission Date: 20190205
  Serious: Yes (Hospitalization)
  Sender: FDA-Public Use
  Company Number: IS-GILEAD-2018-0370682

PATIENT
  Age: 10 Day
  Sex: Female

DRUGS (1)
  1. EVIPLERA [Suspect]
     Active Substance: EMTRICITABINE\RILPIVIRINE\TENOFOVIR DISOPROXIL FUMARATE
     Indication: HIV INFECTION
     Dosage: 200MG/25MG/245MG, QD
     Route: 064

REACTIONS (6)
  - Wound [Recovering/Resolving]
  - Eosinophilic cellulitis [Recovering/Resolving]
  - Pain of skin [Recovering/Resolving]
  - Rash vesicular [Recovering/Resolving]
  - Erythema [Recovering/Resolving]
  - Skin exfoliation [Recovering/Resolving]
